FAERS Safety Report 7832222-1 (Version None)
Quarter: 2011Q4

REPORT INFORMATION
  Report Type: 
  Country: None (occurrence: None)
  Receive Date: 20111022
  Receipt Date: 20100521
  Transmission Date: 20120403
  Serious: No
  Sender: FDA-Public Use
  Company Number: US-BAYER-201023504NA

PATIENT
  Sex: Female

DRUGS (5)
  1. CIPROFLOXACIN [Suspect]
     Indication: RESPIRATORY TRACT INFECTION
     Dosage: UNK
     Dates: start: 20100101
  2. NOVOLOG [Concomitant]
     Dosage: UNK
  3. PREDNISONE [Suspect]
     Dosage: UNK
     Dates: start: 20100101
  4. INHALERS [Suspect]
     Dosage: UNK
     Dates: start: 20100101
  5. LANTUS [Concomitant]
     Dosage: UNK
     Dates: start: 20070201

REACTIONS (1)
  - BLOOD GLUCOSE INCREASED [None]
